FAERS Safety Report 7346854-0 (Version None)
Quarter: 2011Q1

REPORT INFORMATION
  Report Type: 
  Country: None (occurrence: None)
  Receive Date: 20110302
  Receipt Date: 20110215
  Transmission Date: 20110831
  Serious: Yes (Hospitalization)
  Sender: FDA-Public Use
  Company Number: B0701650A

PATIENT
  Age: 46 Year
  Sex: Male

DRUGS (7)
  1. PAROXETINE HYDROCHLORIDE [Suspect]
  2. HYDROCHLOROTHIAZIDE [Concomitant]
  3. CODEINE PHOSPHATE (FORMULATION UNKNOWN) (CODEINE PHOSPHATE) [Suspect]
  4. CITALOPRAM (FORMULATION UNKNOWN) (CITALOPRAM) [Suspect]
     Indication: ADJUSTMENT DISORDER
  5. PARACETAMOL (FORMULATION UNKNOWN) [Suspect]
  6. IRBESARTAN [Suspect]
     Indication: HYPERTENSION
     Dosage: 300 MG
  7. QUETIAPINE [Suspect]
     Indication: AGITATION
     Dosage: 50 MG/TWICE PER DAY

REACTIONS (13)
  - MULTIPLE DRUG OVERDOSE [None]
  - CRYING [None]
  - ADJUSTMENT DISORDER [None]
  - SUICIDAL IDEATION [None]
  - STRESS [None]
  - MARITAL PROBLEM [None]
  - DEPRESSED MOOD [None]
  - LIVER FUNCTION TEST ABNORMAL [None]
  - RENAL FUNCTION TEST ABNORMAL [None]
  - ANXIETY [None]
  - INTENTIONAL SELF-INJURY [None]
  - EMOTIONAL DISTRESS [None]
  - HYPOTENSION [None]
